FAERS Safety Report 4355990-2 (Version None)
Quarter: 2004Q2

REPORT INFORMATION
  Report Type: 
  Country: None (occurrence: None)
  Receive Date: 20040507
  Receipt Date: 20040507
  Transmission Date: 20050107
  Serious: Yes (Life-Threatening, Hospitalization)
  Sender: FDA-Public Use
  Company Number: None

PATIENT
  Age: 82 Year
  Sex: Male
  Weight: 58.1 kg

DRUGS (2)
  1. VICODIN [Suspect]
  2. MORPHINE SULFATE [Suspect]

REACTIONS (2)
  - OVERDOSE [None]
  - STUPOR [None]
